FAERS Safety Report 23738972 (Version 1)
Quarter: 2024Q2

REPORT INFORMATION
  Report Type: Spontaneous
  Country: IT (occurrence: IT)
  Receive Date: 20240413
  Receipt Date: 20240413
  Transmission Date: 20240716
  Serious: Yes (Hospitalization, Other)
  Sender: FDA-Public Use
  Company Number: IT-NOVITIUMPHARMA-2024ITNVP00440

PATIENT
  Age: 55 Year
  Sex: Female

DRUGS (8)
  1. SULFAMETHOXAZOLE\TRIMETHOPRIM [Suspect]
     Active Substance: SULFAMETHOXAZOLE\TRIMETHOPRIM
     Indication: Nocardiosis
     Route: 042
  2. SULFAMETHOXAZOLE\TRIMETHOPRIM [Suspect]
     Active Substance: SULFAMETHOXAZOLE\TRIMETHOPRIM
     Dosage: 2 TABLETS
     Route: 048
  3. DEXAMETHASONE [Suspect]
     Active Substance: DEXAMETHASONE
     Indication: Central nervous system lesion
  4. DEXAMETHASONE [Suspect]
     Active Substance: DEXAMETHASONE
     Indication: Pulmonary mass
  5. MANNITOL [Concomitant]
     Active Substance: MANNITOL
     Indication: Pulmonary mass
  6. MANNITOL [Concomitant]
     Active Substance: MANNITOL
     Indication: Central nervous system lesion
  7. IMIPENEM [Concomitant]
     Active Substance: IMIPENEM
     Indication: Nocardiosis
  8. DOXYCYCLINE [Concomitant]
     Active Substance: DOXYCYCLINE
     Indication: Nocardiosis

REACTIONS (3)
  - Pancytopenia [Unknown]
  - Immunosuppression [Unknown]
  - Nocardiosis [Recovering/Resolving]
